FAERS Safety Report 10588152 (Version 1)
Quarter: 2014Q4

REPORT INFORMATION
  Report Type: Spontaneous
  Country: US (occurrence: US)
  Receive Date: 20141117
  Receipt Date: 20141117
  Transmission Date: 20150529
  Serious: Yes (Other)
  Sender: FDA-Public Use
  Company Number: US-FRI-1000072348

PATIENT
  Age: 37 Year
  Sex: Female
  Weight: 58.97 kg

DRUGS (2)
  1. LINZESS [Suspect]
     Active Substance: LINACLOTIDE
     Indication: GASTROINTESTINAL MOTILITY DISORDER
     Dosage: 145 MCG
     Route: 048
     Dates: start: 2013, end: 201408
  2. LINZESS [Suspect]
     Active Substance: LINACLOTIDE
     Indication: GASTROINTESTINAL MOTILITY DISORDER
     Dosage: 290 MCG
     Route: 048
     Dates: start: 201408, end: 20141110

REACTIONS (5)
  - Off label use [Recovered/Resolved]
  - Diarrhoea [Unknown]
  - Hypertension [Not Recovered/Not Resolved]
  - Fluid retention [Not Recovered/Not Resolved]
  - Weight increased [Not Recovered/Not Resolved]

NARRATIVE: CASE EVENT DATE: 2013
